FAERS Safety Report 15043665 (Version 2)
Quarter: 2018Q3

REPORT INFORMATION
  Report Type: Report from Study
  Country: CN (occurrence: CN)
  Receive Date: 20180621
  Receipt Date: 20180702
  Transmission Date: 20181010
  Serious: Yes (Other)
  Sender: FDA-Public Use
  Company Number: CN-BAYER-2018-103575

PATIENT
  Age: 60 Year
  Sex: Female

DRUGS (1)
  1. STIVARGA [Suspect]
     Active Substance: REGORAFENIB
     Indication: COLORECTAL CANCER
     Dosage: 80 MG, QD
     Route: 048
     Dates: start: 20180518, end: 2018

REACTIONS (4)
  - Ascites [Recovering/Resolving]
  - Genital abscess [Recovering/Resolving]
  - Furuncle [Recovering/Resolving]
  - Off label use [None]

NARRATIVE: CASE EVENT DATE: 2018
